FAERS Safety Report 5156177-6 (Version None)
Quarter: 2006Q4

REPORT INFORMATION
  Report Type: 
  Country: None (occurrence: None)
  Receive Date: 20061122
  Receipt Date: 20061030
  Transmission Date: 20070319
  Serious: Yes (Death, Hospitalization)
  Sender: FDA-Public Use
  Company Number: FR-NOVOPROD-258137

PATIENT
  Age: 23 Year
  Sex: Male
  Weight: 80 kg

DRUGS (2)
  1. NOVOSEVEN [Suspect]
     Dosage: 200 UG, QD
     Route: 042
     Dates: start: 20061020
  2. NOVOSEVEN [Suspect]
     Dosage: 200 UG, QD
     Route: 042
     Dates: start: 20061020

REACTIONS (1)
  - DEATH [None]
